FAERS Safety Report 8241129 (Version 2)
Quarter: 2012Q4

REPORT INFORMATION
  Report Type: 
  Country: US (occurrence: US)
  Receive Date: 20111111
  Receipt Date: 20121113
  Transmission Date: 20130627
  Serious: No
  Sender: FDA-Public Use
  Company Number: US-GLAXOSMITHKLINE-A0938540A

PATIENT
  Sex: Male

DRUGS (6)
  1. CARVEDILOL [Suspect]
     Indication: CARDIOMYOPATHY
     Dosage: 3.125MG Twice per day
     Route: 048
     Dates: start: 201103, end: 201104
  2. COREG CR [Suspect]
     Indication: CARDIOMYOPATHY
     Dosage: 30MG Per day
     Route: 048
     Dates: start: 201101
  3. LOSARTAN [Concomitant]
  4. PEPCID [Concomitant]
  5. PENTOXIFYLLINE [Concomitant]
  6. FUROSEMIDE [Concomitant]

REACTIONS (10)
  - Abdominal pain upper [Not Recovered/Not Resolved]
  - Gastrointestinal pain [Unknown]
  - Proctalgia [Unknown]
  - Rash [Unknown]
  - Gastrointestinal disorder [Unknown]
  - Peripheral coldness [Unknown]
  - Pain [Unknown]
  - Insomnia [Unknown]
  - Gout [Unknown]
  - Blood uric acid increased [Unknown]
